FAERS Safety Report 18428389 (Version 1)
Quarter: 2020Q4

REPORT INFORMATION
  Report Type: Report from Study
  Country: JP (occurrence: JP)
  Receive Date: 20201026
  Receipt Date: 20201026
  Transmission Date: 20210114
  Serious: No
  Sender: FDA-Public Use
  Company Number: JP-LARKEN LABORATORIES, INC.-2093122

PATIENT
  Age: 65 Year
  Sex: Female
  Weight: 54.55 kg

DRUGS (1)
  1. DEXAMETHASONE 1.5 MG TABLET [Suspect]
     Active Substance: DEXAMETHASONE
     Indication: CORTISOL FREE URINE INCREASED
     Route: 048

REACTIONS (1)
  - Cortisol abnormal [Recovered/Resolved]
